FAERS Safety Report 16921128 (Version 1)
Quarter: 2019Q4

REPORT INFORMATION
  Report Type: Report from Study
  Country: US (occurrence: US)
  Receive Date: 20191015
  Receipt Date: 20191015
  Transmission Date: 20200122
  Serious: Yes (Other)
  Sender: FDA-Public Use
  Company Number: US-GLAXOSMITHKLINE-US2019GSK186242

PATIENT
  Age: 32 Year
  Sex: Female

DRUGS (3)
  1. LAMOTRIGINE. [Suspect]
     Active Substance: LAMOTRIGINE
     Dosage: 450 MG, UNK
     Dates: start: 20181013, end: 20190708
  2. LAMOTRIGINE. [Suspect]
     Active Substance: LAMOTRIGINE
     Indication: EPILEPSY
     Dosage: 50 MG, UNK
     Dates: start: 20181013, end: 20190708
  3. KEPPRA [Suspect]
     Active Substance: LEVETIRACETAM
     Indication: EPILEPSY
     Dosage: 3000 MG, UNK
     Dates: start: 20181013, end: 20190708

REACTIONS (4)
  - Live birth [Unknown]
  - Pre-eclampsia [Unknown]
  - Gestational diabetes [Unknown]
  - Exposure during pregnancy [Unknown]
